FAERS Safety Report 5612612-8 (Version None)
Quarter: 2008Q1

REPORT INFORMATION
  Report Type: 
  Country: None (occurrence: None)
  Receive Date: 20080204
  Receipt Date: 20080125
  Transmission Date: 20080703
  Serious: Yes (Other)
  Sender: FDA-Public Use
  Company Number: B0503484A

PATIENT
  Age: 61 Year
  Sex: Female

DRUGS (4)
  1. ZOFRAN [Suspect]
     Indication: NAUSEA
     Dosage: 2MG PER DAY
     Route: 065
     Dates: start: 20070924, end: 20070924
  2. NAROPIN [Suspect]
     Indication: DRUG USE FOR UNKNOWN INDICATION
     Route: 065
  3. CARBOCAIN [Concomitant]
  4. MARCAINE [Concomitant]

REACTIONS (4)
  - DISCOMFORT [None]
  - DYSTONIA [None]
  - MUSCLE SPASMS [None]
  - MUSCLE TWITCHING [None]
